FAERS Safety Report 8471433-1 (Version None)
Quarter: 2012Q2

REPORT INFORMATION
  Report Type: 
  Country: None (occurrence: None)
  Receive Date: 20120627
  Receipt Date: 20120621
  Transmission Date: 20120825
  Serious: Yes (Other)
  Sender: FDA-Public Use
  Company Number: PHFR2012GB003361

PATIENT
  Sex: Female

DRUGS (6)
  1. ETHOSUXIMIDE [Concomitant]
     Dosage: 500 MG, UNK
     Route: 048
  2. DULOXETIME HYDROCHLORIDE [Concomitant]
     Dosage: 60 MG, UNK
     Route: 048
  3. VALPROATE SODIUM [Concomitant]
     Dosage: 800 MG, UNK
     Route: 048
  4. TOPIRAMATE [Concomitant]
     Dosage: 400 MG, UNK
     Route: 048
  5. LANSOPRAZOLE [Concomitant]
     Dosage: 30 MG, UNK
     Route: 048
  6. CLOZARIL [Suspect]
     Indication: SCHIZOPHRENIA
     Dosage: 325 MG, DAILY
     Route: 048
     Dates: start: 20111128, end: 20120401

REACTIONS (3)
  - SEDATION [None]
  - EPILEPSY [None]
  - DRUG INTOLERANCE [None]
